FAERS Safety Report 23890273 (Version 2)
Quarter: 2024Q2

REPORT INFORMATION
  Report Type: Report from Study
  Country: US (occurrence: US)
  Receive Date: 20240523
  Receipt Date: 20240531
  Transmission Date: 20240716
  Serious: Yes (Other)
  Sender: FDA-Public Use
  Company Number: US-SA-SAC20240506001676

PATIENT
  Age: 17 Year
  Sex: Female
  Weight: 62.5 kg

DRUGS (8)
  1. DUPILUMAB [Suspect]
     Active Substance: DUPILUMAB
     Indication: Eosinophilic oesophagitis
     Dosage: 300 MG, QW
     Route: 058
     Dates: start: 20240502
  2. VITAMIN C [Concomitant]
     Active Substance: ASCORBIC ACID
  3. VITAMIN D NOS [Concomitant]
     Active Substance: CHOLECALCIFEROL\ERGOCALCIFEROL
  4. YAZ [DROSPIRENONE;ETHINYLESTRADIOL] [Concomitant]
     Indication: Polycystic ovarian syndrome
     Dosage: 28 DF, QD
     Route: 048
  5. PREGABALIN [Concomitant]
     Active Substance: PREGABALIN
     Indication: Neuralgia
     Dosage: 50 MG, BID
     Route: 048
     Dates: start: 20240509
  6. PREGABALIN [Concomitant]
     Active Substance: PREGABALIN
     Indication: Complex regional pain syndrome
  7. ESSENTIAL OILS NOS [Concomitant]
     Dosage: UNK
  8. SULFURZYME [Concomitant]
     Dosage: UNK

REACTIONS (19)
  - Pain in extremity [Not Recovered/Not Resolved]
  - Condition aggravated [Not Recovered/Not Resolved]
  - Injection site induration [Unknown]
  - Injection site pain [Not Recovered/Not Resolved]
  - Injection site erythema [Unknown]
  - Injection site swelling [Recovered/Resolved]
  - Injection site warmth [Not Recovered/Not Resolved]
  - Injection site urticaria [Not Recovered/Not Resolved]
  - Injection site rash [Recovered/Resolved]
  - Palpitations [Not Recovered/Not Resolved]
  - Asthenia [Not Recovered/Not Resolved]
  - Fatigue [Not Recovered/Not Resolved]
  - Feeling hot [Not Recovered/Not Resolved]
  - Muscular weakness [Not Recovered/Not Resolved]
  - Pain in extremity [Not Recovered/Not Resolved]
  - Myalgia [Not Recovered/Not Resolved]
  - Pruritus [Not Recovered/Not Resolved]
  - Injection site movement impairment [Unknown]
  - Dyspnoea [Unknown]

NARRATIVE: CASE EVENT DATE: 20240501
